FAERS Safety Report 10098880 (Version 1)
Quarter: 2014Q2

REPORT INFORMATION
  Report Type: Spontaneous
  Country: DE (occurrence: DE)
  Receive Date: 20140423
  Receipt Date: 20140423
  Transmission Date: 20141212
  Serious: Yes (Other)
  Sender: FDA-Public Use
  Company Number: ALCN2014DE002441

PATIENT
  Sex: Female

DRUGS (4)
  1. AZOPT [Suspect]
     Indication: INTRAOCULAR PRESSURE FLUCTUATION
     Dosage: UNK
     Route: 047
  2. COMBIGAN [Suspect]
     Indication: DEVELOPMENTAL GLAUCOMA
     Dosage: 1 DF, BID
     Route: 047
     Dates: start: 2012
  3. SPERSACARPIN [Concomitant]
     Dosage: UNK
     Route: 047
  4. DIAMOX #1 [Concomitant]
     Dosage: 1 DF, PRN
     Route: 048

REACTIONS (3)
  - Intraocular pressure increased [Unknown]
  - Intraocular pressure fluctuation [Not Recovered/Not Resolved]
  - Drug ineffective [Unknown]
